FAERS Safety Report 9330522 (Version 1)
Quarter: 2013Q2

REPORT INFORMATION
  Report Type: Spontaneous
  Country: US (occurrence: US)
  Receive Date: 20130605
  Receipt Date: 20130605
  Transmission Date: 20140414
  Serious: No
  Sender: FDA-Public Use
  Company Number: US-B.I. PHARMACEUTICALS,INC./RIDGEFIELD-2013-BI-15400BP

PATIENT
  Age: 56 Year
  Sex: Female

DRUGS (10)
  1. TRADJENTA [Suspect]
     Indication: TYPE 2 DIABETES MELLITUS
     Dosage: 5 MG
     Route: 048
     Dates: start: 201305
  2. METFORMIN ER [Concomitant]
     Indication: TYPE 2 DIABETES MELLITUS
     Dosage: DAILY DOSE: 2500 MG
     Route: 048
     Dates: end: 201305
  3. METFORMIN ER [Concomitant]
     Dosage: DAILY DOSE: 2000 MG
     Route: 048
     Dates: start: 201305
  4. ESTRATEST [Concomitant]
     Indication: HORMONE LEVEL ABNORMAL
     Dosage: STRENGTH: 1.25MG/2.5MG; DAILY DOSE: 1.25MG/2.5MG
     Route: 048
  5. LISINOPRIL [Concomitant]
     Indication: HYPERTENSION
     Dosage: 5 MG
     Route: 048
  6. LISINOPRIL [Concomitant]
     Indication: PROPHYLAXIS
  7. ASTELIN [Concomitant]
     Indication: HYPERSENSITIVITY
     Dosage: FORMULATION: NASAL SPRAY; STRENGTH: 1 SPRAY; DAILY DOSE: 1 SPRAY
     Route: 045
  8. FLONASE NASAL SPRAY [Concomitant]
     Indication: HYPERSENSITIVITY
     Dosage: FORMULATION: NASAL SPRAY STRENGTH: 1 SPRAY; DAILY DOSE: 1 SPRAY
     Route: 045
  9. VALTREX [Concomitant]
     Dosage: 500 MG
     Route: 048
  10. FENUGREEK [Concomitant]
     Indication: TYPE 2 DIABETES MELLITUS
     Dosage: 3 ANZ
     Route: 048

REACTIONS (1)
  - Blood glucose abnormal [Not Recovered/Not Resolved]
